FAERS Safety Report 24824271 (Version 1)
Quarter: 2025Q1

REPORT INFORMATION
  Report Type: Spontaneous
  Country: CN (occurrence: CN)
  Receive Date: 20250109
  Receipt Date: 20250109
  Transmission Date: 20250408
  Serious: Yes (Hospitalization, Other)
  Sender: BAXTER
  Company Number: None

PATIENT
  Age: 1 Year
  Sex: Female
  Weight: 10 kg

DRUGS (2)
  1. CYCLOPHOSPHAMIDE [Suspect]
     Active Substance: CYCLOPHOSPHAMIDE
     Indication: Renal cancer
     Route: 050
     Dates: start: 20241221, end: 20241221
  2. CYCLOPHOSPHAMIDE [Suspect]
     Active Substance: CYCLOPHOSPHAMIDE
     Indication: Neoplasm

REACTIONS (12)
  - Nephroblastoma [Unknown]
  - Mouth ulceration [Unknown]
  - Ureteric cancer [Unknown]
  - Bladder cancer [Unknown]
  - Myelosuppression [Unknown]
  - Agranulocytosis [Unknown]
  - Pyrexia [Unknown]
  - White blood cell count decreased [Unknown]
  - Platelet count decreased [Unknown]
  - Haemoglobin decreased [Unknown]
  - Vomiting [Unknown]
  - Pneumonia [Unknown]

NARRATIVE: CASE EVENT DATE: 20241228
